FAERS Safety Report 18899516 (Version 2)
Quarter: 2021Q1

REPORT INFORMATION
  Report Type: Spontaneous
  Country: HN (occurrence: HN)
  Receive Date: 20210216
  Receipt Date: 20210218
  Transmission Date: 20210420
  Serious: Yes (Other)
  Sender: FDA-Public Use
  Company Number: HN-PFIZER INC-2021146953

PATIENT
  Age: 86 Year
  Sex: Female

DRUGS (1)
  1. LIPITOR [Suspect]
     Active Substance: ATORVASTATIN CALCIUM
     Dosage: 1 DF, DAILY
     Route: 048
     Dates: start: 2011

REACTIONS (1)
  - Deafness [Unknown]
